FAERS Safety Report 7145376-X (Version None)
Quarter: 2010Q4

REPORT INFORMATION
  Report Type: 
  Country: None (occurrence: None)
  Receive Date: 20101208
  Receipt Date: 20101201
  Transmission Date: 20110411
  Serious: Yes (Death, Hospitalization)
  Sender: FDA-Public Use
  Company Number: UA-ROCHE-732517

PATIENT
  Sex: Male
  Weight: 111.6 kg

DRUGS (2)
  1. BEVACIZUMAB [Suspect]
     Indication: RENAL CELL CARCINOMA
     Dosage: SOLUTION FOR INFUSION
     Route: 042
     Dates: start: 20100528
  2. TEMSIROLIMUS [Suspect]
     Indication: RENAL CELL CARCINOMA
     Route: 042
     Dates: start: 20100528

REACTIONS (3)
  - BACK PAIN [None]
  - DEATH [None]
  - PERIOSTITIS [None]
